FAERS Safety Report 21759978 (Version 2)
Quarter: 2023Q2

REPORT INFORMATION
  Report Type: Spontaneous
  Country: US (occurrence: US)
  Receive Date: 20221221
  Receipt Date: 20230404
  Transmission Date: 20230722
  Serious: Yes (Hospitalization, Other)
  Sender: FDA-Public Use
  Company Number: US-GLAXOSMITHKLINE-USCH2022AMR050600

PATIENT

DRUGS (8)
  1. IBUPROFEN [Suspect]
     Active Substance: IBUPROFEN
     Indication: Product used for unknown indication
     Dosage: 600 MG
  2. LAMICTAL [Suspect]
     Active Substance: LAMOTRIGINE
     Indication: Affective disorder
     Dosage: UNK
  3. LAMICTAL [Suspect]
     Active Substance: LAMOTRIGINE
     Indication: Anxiety
  4. OLANZAPINE [Suspect]
     Active Substance: OLANZAPINE
     Indication: Product used for unknown indication
     Dosage: 2 DF, BID
  5. BUDESONIDE [Suspect]
     Active Substance: BUDESONIDE
     Indication: Product used for unknown indication
     Dosage: UNK, QD
  6. KEFLEX [Suspect]
     Active Substance: CEPHALEXIN
     Indication: Product used for unknown indication
     Dosage: UNK
  7. TYLENOL [Suspect]
     Active Substance: ACETAMINOPHEN
     Indication: Product used for unknown indication
     Dosage: UNK
  8. CHLORASEPTIC SORE THROAT [Suspect]
     Active Substance: PHENOL
     Indication: Product used for unknown indication
     Dosage: UNK

REACTIONS (57)
  - Stevens-Johnson syndrome [Unknown]
  - Toxic epidermal necrolysis [Unknown]
  - Angioedema [Unknown]
  - Conjunctival haemorrhage [Unknown]
  - Ventricular tachycardia [Unknown]
  - Hyperkalaemia [Unknown]
  - Skin necrosis [Unknown]
  - Anaphylactic reaction [Unknown]
  - Eye swelling [Unknown]
  - Lip swelling [Unknown]
  - Rash [Unknown]
  - Blister [Unknown]
  - Oropharyngeal pain [Unknown]
  - Hypersensitivity [Unknown]
  - Purpura [Unknown]
  - Pyrexia [Unknown]
  - Eye discharge [Unknown]
  - Vision blurred [Unknown]
  - Oral mucosal eruption [Unknown]
  - Cheilitis [Unknown]
  - Tachycardia [Unknown]
  - Tachypnoea [Unknown]
  - Leukocytosis [Unknown]
  - Peripheral swelling [Unknown]
  - Pain in extremity [Unknown]
  - Oral mucosal blistering [Unknown]
  - Conjunctival hyperaemia [Recovered/Resolved]
  - Anxiety [Unknown]
  - Flushing [Unknown]
  - Urticaria [Unknown]
  - Dyspnoea [Unknown]
  - Chest pain [Unknown]
  - Back pain [Unknown]
  - Pruritus [Unknown]
  - Hypertension [Unknown]
  - Dizziness [Unknown]
  - Sinus tachycardia [Unknown]
  - Nasal congestion [Unknown]
  - Skin disorder [Unknown]
  - Gastrointestinal disorder [Unknown]
  - Hypotension [Unknown]
  - Blister [Unknown]
  - Oral mucosal exfoliation [Unknown]
  - Skin exfoliation [Unknown]
  - Eye discharge [Unknown]
  - Increased bronchial secretion [Unknown]
  - Wheezing [Unknown]
  - Mouth haemorrhage [Unknown]
  - Lymphocytic infiltration [Unknown]
  - Diarrhoea [Unknown]
  - Blood sodium decreased [Unknown]
  - Blood phosphorus decreased [Unknown]
  - Haemoglobin decreased [Unknown]
  - Restlessness [Unknown]
  - Labile blood pressure [Unknown]
  - Sleep disorder [Unknown]
  - Confusional state [Unknown]
